FAERS Safety Report 8881561 (Version 4)
Quarter: 2012Q4

REPORT INFORMATION
  Report Type: 
  Country: JP (occurrence: JP)
  Receive Date: 20121101
  Receipt Date: 20121217
  Transmission Date: 20130627
  Serious: Yes (Hospitalization, Disabling, Other)
  Sender: FDA-Public Use
  Company Number: JP-ABBOTT-12P-087-1000010-00

PATIENT
  Age: 33 None
  Sex: Female
  Weight: 38 kg

DRUGS (6)
  1. HUMIRA [Suspect]
     Indication: CROHN^S DISEASE
     Route: 058
     Dates: start: 20110322, end: 20110322
  2. HUMIRA [Suspect]
     Dates: start: 20110405, end: 20110405
  3. HUMIRA [Suspect]
     Dates: start: 20110419, end: 20120417
  4. ANTIBIOTICS [Suspect]
     Indication: PRODUCT USED FOR UNKNOWN INDICATION
  5. MESALAZINE [Concomitant]
     Indication: CROHN^S DISEASE
     Route: 048
  6. CLOSTRIDIUM BUTYRICUM [Concomitant]
     Indication: CROHN^S DISEASE
     Route: 048

REACTIONS (5)
  - Suture rupture [Recovered/Resolved with Sequelae]
  - Ileectomy [Unknown]
  - Hyperthermia [Unknown]
  - Inflammatory marker increased [Unknown]
  - Liver function test abnormal [Unknown]
